FAERS Safety Report 18456978 (Version 2)
Quarter: 2020Q4

REPORT INFORMATION
  Report Type: Spontaneous
  Country: CZ (occurrence: CZ)
  Receive Date: 20201103
  Receipt Date: 20201217
  Transmission Date: 20210114
  Serious: Yes (Life-Threatening, Other)
  Sender: FDA-Public Use
  Company Number: CZ-SHILPA MEDICARE LIMITED-SML-CZ-2020-00552

PATIENT
  Age: 82 Year
  Sex: Male

DRUGS (12)
  1. LONSURF [Suspect]
     Active Substance: TIPIRACIL HYDROCHLORIDE\TRIFLURIDINE
     Indication: APPENDIX CANCER
     Dosage: EVERY CYCLE, A TOTAL OF 20 CYCLE
     Route: 048
     Dates: start: 201707
  2. FILGRASTIM [Suspect]
     Active Substance: FILGRASTIM
     Indication: APPENDIX CANCER
     Dosage: EVERY CYCLE
     Route: 065
  3. CALCIUM FOLINATE [Suspect]
     Active Substance: LEUCOVORIN CALCIUM
     Indication: APPENDIX CANCER
     Dosage: EVERY CYCLE
     Route: 065
     Dates: start: 20121122
  4. IRINOTECAN [Suspect]
     Active Substance: IRINOTECAN
     Indication: APPENDIX CANCER
     Dosage: EVERY CYCLE
     Route: 065
  5. CAPECITABINE, UNKNOWN [Suspect]
     Active Substance: CAPECITABINE
     Indication: APPENDIX CANCER
     Dosage: EVERY CYCLE
     Route: 065
  6. OXALIPLATIN. [Suspect]
     Active Substance: OXALIPLATIN
     Dosage: EVERY CYCLE
     Route: 065
     Dates: start: 20121122
  7. OXALIPLATIN. [Suspect]
     Active Substance: OXALIPLATIN
     Indication: APPENDIX CANCER
     Dosage: EVERY CYCLE
     Route: 065
     Dates: start: 201211
  8. FLUOROURACIL. [Suspect]
     Active Substance: FLUOROURACIL
     Dosage: EVERY CYCLE
     Route: 065
     Dates: start: 20121122
  9. FOLINIC ACID [Suspect]
     Active Substance: LEUCOVORIN
     Indication: APPENDIX CANCER
     Dosage: EVERY CYCLE
     Route: 065
     Dates: start: 201211
  10. FLUOROURACIL. [Suspect]
     Active Substance: FLUOROURACIL
     Indication: APPENDIX CANCER
     Dosage: EVERY CYCLE
     Route: 065
     Dates: start: 201211
  11. FOLINIC ACID [Suspect]
     Active Substance: LEUCOVORIN
     Dosage: EVERY CYCLE
     Route: 065
     Dates: start: 20121122
  12. RALTITREXED [Suspect]
     Active Substance: RALTITREXED
     Indication: GASTROINTESTINAL TOXICITY
     Route: 065
     Dates: start: 201704

REACTIONS (5)
  - Disease progression [Recovered/Resolved]
  - Neutropenia [Recovered/Resolved]
  - Condition aggravated [Recovered/Resolved]
  - Haematotoxicity [Recovering/Resolving]
  - Anaemia [Recovered/Resolved]

NARRATIVE: CASE EVENT DATE: 2020
